FAERS Safety Report 5941363-5 (Version None)
Quarter: 2008Q4

REPORT INFORMATION
  Report Type: 
  Country: None (occurrence: None)
  Receive Date: 20081103
  Receipt Date: 20081022
  Transmission Date: 20090506
  Serious: Yes (Hospitalization)
  Sender: FDA-Public Use
  Company Number: 100#08#2008-05445

PATIENT
  Age: 68 Year
  Sex: Female

DRUGS (4)
  1. CARBAMAZEPINE [Suspect]
     Indication: TRIGEMINAL NEURALGIA
  2. MINOCYCLINE HCL [Suspect]
     Indication: PHARYNGITIS
     Dates: start: 20030806
  3. MINOCYCLINE HCL [Suspect]
     Indication: PYREXIA
     Dates: start: 20030806
  4. ZONISAMIDE [Suspect]
     Indication: EXTRASYSTOLES

REACTIONS (6)
  - ALANINE AMINOTRANSFERASE INCREASED [None]
  - DRUG RASH WITH EOSINOPHILIA AND SYSTEMIC SYMPTOMS [None]
  - GAMMA-GLUTAMYLTRANSFERASE INCREASED [None]
  - HUMAN HERPES VIRUS 6 SEROLOGY POSITIVE [None]
  - PEMPHIGOID [None]
  - PHARYNGITIS [None]
